FAERS Safety Report 17277274 (Version 4)
Quarter: 2023Q1

REPORT INFORMATION
  Report Type: Spontaneous
  Country: US (occurrence: US)
  Receive Date: 20200116
  Receipt Date: 20230116
  Transmission Date: 20230418
  Serious: Yes (Death)
  Sender: FDA-Public Use
  Company Number: US-VIFOR (INTERNATIONAL) INC.-VIT-2020-00007

PATIENT
  Age: 63 Year
  Sex: Male
  Weight: 85.806 kg

DRUGS (1)
  1. VELTASSA [Suspect]
     Active Substance: PATIROMER
     Indication: Hyperkalaemia
     Dosage: CONTENTS OF 1 PACKET INTO 1/3 CUP OF WATER AND DRANK THE FULL AMOUNT
     Route: 048
     Dates: start: 20180525

REACTIONS (5)
  - Death [Fatal]
  - Blood potassium increased [Recovered/Resolved]
  - Product dose omission in error [Unknown]
  - Treatment noncompliance [Unknown]
  - Off label use [Unknown]

NARRATIVE: CASE EVENT DATE: 20210101
